FAERS Safety Report 12974111 (Version 1)
Quarter: 2016Q4

REPORT INFORMATION
  Report Type: Spontaneous
  Country: US (occurrence: US)
  Receive Date: 20161124
  Receipt Date: 20161124
  Transmission Date: 20170207
  Serious: No
  Sender: FDA-Public Use
  Company Number: US-BRISTOL-MYERS SQUIBB COMPANY-BMS-2016-100430

PATIENT
  Sex: Female

DRUGS (2)
  1. ARIPIPRAZOLE. [Suspect]
     Active Substance: ARIPIPRAZOLE
     Indication: BIPOLAR DISORDER
     Dosage: 20 MG, QD
     Route: 048
  2. ABILIFY [Suspect]
     Active Substance: ARIPIPRAZOLE
     Indication: BIPOLAR DISORDER
     Dosage: 20 MG, QD
     Route: 048
     Dates: end: 201603

REACTIONS (10)
  - Headache [Unknown]
  - Urinary tract infection [Unknown]
  - Off label use [Unknown]
  - Loss of employment [Unknown]
  - Restlessness [Unknown]
  - Tachyphrenia [Unknown]
  - Influenza immunisation [Unknown]
  - Feeling abnormal [Recovered/Resolved]
  - Adverse drug reaction [Unknown]
  - Disturbance in attention [Unknown]
